FAERS Safety Report 16736643 (Version 1)
Quarter: 2019Q3

REPORT INFORMATION
  Report Type: Spontaneous
  Country: US (occurrence: US)
  Receive Date: 20190709
  Receipt Date: 20190709
  Transmission Date: 20191005
  Serious: No
  Sender: FDA-Public Use
  Company Number: None

PATIENT
  Age: 29 Year
  Sex: Female

DRUGS (1)
  1. RYDAPT [Suspect]
     Active Substance: MIDOSTAURIN
     Dates: start: 20190326, end: 20190707

REACTIONS (4)
  - Liver function test increased [None]
  - Decreased appetite [None]
  - Myalgia [None]
  - Rash [None]

NARRATIVE: CASE EVENT DATE: 20190709
